FAERS Safety Report 8267721-4 (Version None)
Quarter: 2012Q2

REPORT INFORMATION
  Report Type: 
  Country: None (occurrence: None)
  Receive Date: 20120404
  Receipt Date: 20120320
  Transmission Date: 20120825
  Serious: Yes (Other)
  Sender: FDA-Public Use
  Company Number: THQ2012A02538

PATIENT
  Sex: Male

DRUGS (6)
  1. VYTORIN [Concomitant]
  2. COLECALCIFEROL [Concomitant]
  3. LOSARTAN POTASSIUM [Concomitant]
  4. ACETYLSALICYLIC ACID SRT [Concomitant]
  5. SITAGLIPTIN AND METFORMIN HYDROCHLORIDE [Concomitant]
  6. ACTOS [Suspect]
     Indication: DIABETES MELLITUS
     Dosage: 30 MG (30 MG, 1 IN 1 D), PER ORAL, BEFORE 2002
     Route: 048
     Dates: end: 20120201

REACTIONS (2)
  - RECTAL CANCER [None]
  - TRANSITIONAL CELL CARCINOMA [None]
